FAERS Safety Report 23296140 (Version 6)
Quarter: 2024Q3

REPORT INFORMATION
  Report Type: Spontaneous
  Country: US (occurrence: US)
  Receive Date: 20231214
  Receipt Date: 20240727
  Transmission Date: 20241016
  Serious: Yes (Hospitalization)
  Sender: SANOFI AVENTIS
  Company Number: US-SA-SAC20231211000104

PATIENT
  Age: 6 Year
  Sex: Male
  Weight: 24.3 kg

DRUGS (1)
  1. DUPIXENT [Suspect]
     Active Substance: DUPILUMAB
     Indication: Dermatitis allergic
     Dosage: 300 MG, Q4W
     Route: 058
     Dates: start: 202310

REACTIONS (5)
  - Appendix disorder [Unknown]
  - Weight increased [Unknown]
  - Upper limb fracture [Recovered/Resolved]
  - Dermatitis allergic [Unknown]
  - Condition aggravated [Unknown]

NARRATIVE: CASE EVENT DATE: 20230101
